FAERS Safety Report 5166659-9 (Version None)
Quarter: 2006Q4

REPORT INFORMATION
  Report Type: 
  Country: None (occurrence: None)
  Receive Date: 20061130
  Receipt Date: 20061130
  Transmission Date: 20070319
  Serious: Yes (Other)
  Sender: FDA-Public Use
  Company Number: None

PATIENT
  Age: 84 Year
  Sex: Male

DRUGS (8)
  1. ARAVA [Suspect]
     Dates: start: 20050413, end: 20050707
  2. PLAQUENIL [Suspect]
     Dates: start: 20050707, end: 20050812
  3. PREDNISONE TAB [Concomitant]
  4. ATENOLOL [Concomitant]
  5. ASPIRIN [Concomitant]
  6. MULTI-VITAMIN [Concomitant]
  7. FOSAMAX [Concomitant]
  8. EYEDROPS [Concomitant]

REACTIONS (15)
  - ALANINE AMINOTRANSFERASE INCREASED [None]
  - ASPARTATE AMINOTRANSFERASE INCREASED [None]
  - BLOOD ALBUMIN DECREASED [None]
  - BLOOD ALKALINE PHOSPHATASE INCREASED [None]
  - BLOOD BILIRUBIN INCREASED [None]
  - CARDIOMEGALY [None]
  - CHROMATURIA [None]
  - DRUG INEFFECTIVE [None]
  - FAECES PALE [None]
  - HEPATIC STEATOSIS [None]
  - HEPATIC TRAUMA [None]
  - HEPATOTOXICITY [None]
  - NODAL RHYTHM [None]
  - OCULAR ICTERUS [None]
  - PROTEIN TOTAL DECREASED [None]
